FAERS Safety Report 9331984 (Version 1)
Quarter: 2013Q2

REPORT INFORMATION
  Report Type: Spontaneous
  Country: JP (occurrence: None)
  Receive Date: 20130523
  Receipt Date: 20130523
  Transmission Date: 20140414
  Serious: Yes (Hospitalization)
  Sender: FDA-Public Use
  Company Number: 0238687

PATIENT
  Age: 44 Year
  Sex: Male

DRUGS (2)
  1. TACHOSIL [Suspect]
     Indication: HAEMORRHAGE PROPHYLAXIS
     Dosage: (1/6 SHEETS OF REGULAR SIZE-DAILYDOSE)
     Dates: start: 20130308, end: 20130308
  2. TAKEPRON (LANSOPRAZOLE) [Concomitant]

REACTIONS (1)
  - Renal haemorrhage [None]
